FAERS Safety Report 5583533-4 (Version None)
Quarter: 2008Q1

REPORT INFORMATION
  Report Type: 
  Country: None (occurrence: None)
  Receive Date: 20080107
  Receipt Date: 20071212
  Transmission Date: 20080703
  Serious: No
  Sender: FDA-Public Use
  Company Number: US-BOEHRINGER INGELHEIM PHARMACEUTICALS, INC.-2007-BP-21143BP

PATIENT
  Age: 78 Year
  Sex: Male

DRUGS (4)
  1. SPIRIVA [Suspect]
     Indication: EMPHYSEMA
     Route: 055
     Dates: start: 20050101, end: 20070914
  2. OXYGEN [Concomitant]
  3. ACTONEL [Concomitant]
  4. ATROVENT [Concomitant]

REACTIONS (2)
  - DRUG INEFFECTIVE [None]
  - DRY MOUTH [None]
